FAERS Safety Report 9199990 (Version 2)
Quarter: 2013Q2

REPORT INFORMATION
  Report Type: Spontaneous
  Country: US (occurrence: US)
  Receive Date: 20130329
  Receipt Date: 20130422
  Transmission Date: 20140414
  Serious: Yes (Disabling)
  Sender: FDA-Public Use
  Company Number: US-GLAXOSMITHKLINE-A1016859A

PATIENT
  Age: 66 Year
  Sex: Female

DRUGS (2)
  1. PROMACTA [Suspect]
     Indication: IDIOPATHIC THROMBOCYTOPENIC PURPURA
     Dosage: 50MG PER DAY
     Route: 048
     Dates: start: 20130128, end: 20130228
  2. UNKNOWN [Concomitant]

REACTIONS (6)
  - Joint swelling [Recovering/Resolving]
  - Cyanosis [Recovering/Resolving]
  - Asthenia [Recovering/Resolving]
  - Rash vesicular [Recovering/Resolving]
  - Eye irritation [Recovering/Resolving]
  - Eye pruritus [Recovering/Resolving]
